FAERS Safety Report 14978938 (Version 1)
Quarter: 2018Q2

REPORT INFORMATION
  Report Type: Spontaneous
  Country: PL (occurrence: PL)
  Receive Date: 20180606
  Receipt Date: 20180606
  Transmission Date: 20180711
  Serious: Yes (Disabling, Other)
  Sender: FDA-Public Use
  Company Number: PL-SA-2018SA140088

PATIENT
  Age: 62 Year
  Sex: Male
  Weight: 137 kg

DRUGS (4)
  1. ZOLPIDEM TARTRATE. [Suspect]
     Active Substance: ZOLPIDEM TARTRATE
     Dosage: UNK UNK, UNK
  2. SERTRALINE HYDROCHLORIDE. [Interacting]
     Active Substance: SERTRALINE HYDROCHLORIDE
     Dosage: UNK
  3. SOTALOL. [Concomitant]
     Active Substance: SOTALOL
  4. WARFARIN [Concomitant]
     Active Substance: WARFARIN

REACTIONS (4)
  - Incorrect drug administration duration [Unknown]
  - Ischaemic stroke [Unknown]
  - Apallic syndrome [Unknown]
  - Drug interaction [Unknown]
